FAERS Safety Report 4871387-0 (Version None)
Quarter: 2006Q1

REPORT INFORMATION
  Report Type: 
  Country: None (occurrence: None)
  Receive Date: 20060103
  Receipt Date: 20051004
  Transmission Date: 20060701
  Serious: Yes (Hospitalization)
  Sender: FDA-Public Use
  Company Number: US-MERCK-0510USA03866

PATIENT
  Age: 63 Year
  Sex: Male
  Weight: 86 kg

DRUGS (13)
  1. VIOXX [Suspect]
     Indication: RHEUMATOID ARTHRITIS
     Route: 048
     Dates: start: 20001106, end: 20040709
  2. VIOXX [Suspect]
     Indication: PAIN
     Route: 048
     Dates: start: 20001106, end: 20040709
  3. AMBIEN [Concomitant]
     Indication: SLEEP DISORDER THERAPY
     Route: 065
  4. HYDROCORTISONE [Concomitant]
     Route: 065
  5. DOXYCYCLINE [Concomitant]
     Indication: BACTERIAL INFECTION
     Route: 065
  6. PRAMOSONE [Concomitant]
     Indication: SKIN IRRITATION
     Route: 065
  7. GUAIFENESIN [Concomitant]
     Indication: BRONCHITIS
     Route: 065
  8. GUAIFENESIN [Concomitant]
     Indication: COUGH
     Route: 065
  9. AMOXIL [Concomitant]
     Indication: BACTERIAL INFECTION
     Route: 065
  10. HYDROCODONE BITARTRATE [Concomitant]
     Indication: PAIN
     Route: 065
  11. TYLENOL [Concomitant]
     Indication: PAIN
     Route: 065
     Dates: start: 19800101
  12. AMANTADINE HYDROCHLORIDE [Concomitant]
     Indication: PARKINSON'S DISEASE
     Route: 065
  13. AMANTADINE HYDROCHLORIDE [Concomitant]
     Indication: INFLUENZA
     Route: 065

REACTIONS (6)
  - ANXIETY [None]
  - CORONARY ARTERY OCCLUSION [None]
  - DEPRESSION [None]
  - HYPOKALAEMIA [None]
  - MYOCARDIAL INFARCTION [None]
  - OEDEMA PERIPHERAL [None]
